FAERS Safety Report 13370742 (Version 2)
Quarter: 2017Q4

REPORT INFORMATION
  Report Type: Spontaneous
  Country: JP (occurrence: JP)
  Receive Date: 20170324
  Receipt Date: 20171227
  Transmission Date: 20180320
  Serious: Yes (Death, Life-Threatening, Hospitalization)
  Sender: FDA-Public Use
  Company Number: PHJP2016JP037681

PATIENT
  Age: 13 Year
  Sex: Male
  Weight: 44.2 kg

DRUGS (4)
  1. TASIGNA [Suspect]
     Active Substance: NILOTINIB
     Dosage: 600 MG, UNK
     Route: 048
     Dates: start: 20150203, end: 20150830
  2. ALLELOCK [Concomitant]
     Active Substance: OLOPATADINE HYDROCHLORIDE
     Indication: PRURITUS
     Dosage: 5 MG, BID
     Route: 048
     Dates: start: 20150106
  3. TASIGNA [Suspect]
     Active Substance: NILOTINIB
     Indication: ACUTE LYMPHOCYTIC LEUKAEMIA
     Dosage: 300 MG, BID
     Route: 048
     Dates: start: 20141223, end: 20150120
  4. THYRADIN-S [Concomitant]
     Active Substance: LEVOTHYROXINE
     Indication: HYPOTHYROIDISM
     Dosage: 25 MG, QD
     Route: 048
     Dates: start: 20140312

REACTIONS (17)
  - Genital pain [Unknown]
  - Scrotal inflammation [Unknown]
  - Neutrophil count decreased [Unknown]
  - Soft tissue infection [Unknown]
  - White blood cell count decreased [Unknown]
  - Scrotal swelling [Unknown]
  - Product use in unapproved indication [Unknown]
  - Scrotal erythema [Unknown]
  - Scrotal pain [Unknown]
  - Sepsis [Unknown]
  - Skin infection [Unknown]
  - Beta haemolytic streptococcal infection [Recovering/Resolving]
  - Groin pain [Unknown]
  - Septic shock [Unknown]
  - Haemoglobin decreased [Unknown]
  - Acute lymphocytic leukaemia [Fatal]
  - Pyrexia [Recovering/Resolving]

NARRATIVE: CASE EVENT DATE: 20150119
